FAERS Safety Report 18082965 (Version 1)
Quarter: 2020Q3

REPORT INFORMATION
  Report Type: Spontaneous
  Country: US (occurrence: US)
  Receive Date: 20200728
  Receipt Date: 20200728
  Transmission Date: 20201103
  Serious: No
  Sender: FDA-Public Use
  Company Number: US-PERRIGO-19US014081

PATIENT
  Age: 34 Year
  Sex: Male
  Weight: 95.24 kg

DRUGS (1)
  1. MINOXIDIL. [Suspect]
     Active Substance: MINOXIDIL
     Indication: ALOPECIA
     Dosage: 1 ML, UP TO TWICE DAILY
     Route: 061
     Dates: start: 201905, end: 20191101

REACTIONS (2)
  - Inappropriate schedule of product administration [Recovered/Resolved]
  - Application site pruritus [Recovered/Resolved]

NARRATIVE: CASE EVENT DATE: 201910
